FAERS Safety Report 13458257 (Version 4)
Quarter: 2017Q3

REPORT INFORMATION
  Report Type: Report from Study
  Country: CN (occurrence: CN)
  Receive Date: 20170419
  Receipt Date: 20170719
  Transmission Date: 20171127
  Serious: Yes (Death, Life-Threatening, Hospitalization)
  Sender: FDA-Public Use
  Company Number: CN-AMGEN-CHNCT2017058844

PATIENT
  Age: 61 Year
  Sex: Male
  Weight: 65 kg

DRUGS (19)
  1. RECOMBINANT HUMAN INTERLEUKIN-11 [Concomitant]
     Indication: THROMBOCYTOPENIA
     Dosage: 2 MG, UNK
     Dates: start: 20161205, end: 20170224
  2. MAGNESIUM ISOGLYCYRRHIZINATE [Concomitant]
     Active Substance: MAGNESIUM ISOGLYCYRRHIZINATE
     Indication: PROPHYLAXIS
  3. INSULIN [Concomitant]
     Active Substance: INSULIN NOS
     Indication: BLOOD GLUCOSE INCREASED
     Dosage: 4 TO 12 UNK, UNK
     Dates: start: 20170211, end: 20170227
  4. DIGOXINE [Concomitant]
     Active Substance: DIGOXIN
     Indication: ARRHYTHMIA
     Dosage: 1 UNK, UNK
     Dates: start: 20161208, end: 20170106
  5. TEGAFUR [Concomitant]
     Active Substance: TEGAFUR
     Dosage: 1000 MG, UNK
     Dates: start: 20161120, end: 20161120
  6. PREDNISONE ACETATE [Concomitant]
     Active Substance: PREDNISONE ACETATE
     Indication: IMMUNODEFICIENCY
     Dosage: 3 PIECES/TIMES, BID
     Dates: start: 20170126, end: 20170211
  7. PALONOSETRON HYDROCHLORIDE. [Concomitant]
     Active Substance: PALONOSETRON HYDROCHLORIDE
     Indication: VOMITING
     Dosage: 5 ML, UNK
     Dates: start: 20161212, end: 20170213
  8. PEMETREXED DISODIUM [Concomitant]
     Active Substance: PEMETREXED DISODIUM
     Dosage: 800 MG, UNK
     Dates: start: 20161022, end: 20170211
  9. INTERLEUKIN-2 [Concomitant]
     Active Substance: ALDESLEUKIN
     Indication: IMMUNODEFICIENCY
     Dosage: 3 TO 400 UNK, UNK
     Dates: start: 20161214, end: 20170213
  10. DEXAMETHASONE SODIUM PHOSPHATE. [Concomitant]
     Active Substance: DEXAMETHASONE SODIUM PHOSPHATE
     Indication: HYPERSENSITIVITY
     Dosage: 4 TO 5 MG, UNK
     Dates: start: 20161212, end: 20170211
  11. ISOSORBIDE MONONITRATE. [Concomitant]
     Active Substance: ISOSORBIDE MONONITRATE
     Indication: ANGINA PECTORIS
     Dosage: 1 UNK, UNK
     Dates: start: 20161208, end: 20161231
  12. TRIMETAZIDINE DIHYDROCHLORIDE [Concomitant]
     Active Substance: TRIMETAZIDINE DIHYDROCHLORIDE
     Indication: ANGINA PECTORIS
     Dosage: 1 UNK, UNK
     Dates: start: 20161208, end: 20161217
  13. PEGFILGRASTIM [Concomitant]
     Active Substance: PEGFILGRASTIM
     Indication: WHITE BLOOD CELL COUNT DECREASED
     Dosage: 150 TO 300 MCG, UNK
     Dates: start: 20161210, end: 20170226
  14. SODIUM RABEPRAZOLE [Concomitant]
     Active Substance: RABEPRAZOLE SODIUM
     Dosage: 10 MG, UNK
     Dates: start: 20170105, end: 20170111
  15. NEDAPLATIN [Concomitant]
     Active Substance: NEDAPLATIN
     Dosage: 40 MG, UNK
     Dates: start: 20161022, end: 20170213
  16. CARBOPLATIN. [Concomitant]
     Active Substance: CARBOPLATIN
     Dosage: 150 MG, UNK
     Dates: start: 20161120, end: 20161120
  17. DARBEPOETIN ALFA [Suspect]
     Active Substance: DARBEPOETIN ALFA
     Indication: ANAEMIA OF MALIGNANT DISEASE
     Dosage: 300 MUG/ML, Q3WK
     Route: 065
     Dates: start: 20161214, end: 20170213
  18. PEGFILGRASTIM [Concomitant]
     Active Substance: PEGFILGRASTIM
     Indication: NEUTROPHIL COUNT DECREASED
  19. MAGNESIUM ISOGLYCYRRHIZINATE [Concomitant]
     Active Substance: MAGNESIUM ISOGLYCYRRHIZINATE
     Indication: HEPATIC FUNCTION ABNORMAL
     Dosage: 100 TO 200 MG, UNK
     Dates: start: 20161206, end: 20170212

REACTIONS (1)
  - Pulmonary embolism [Fatal]

NARRATIVE: CASE EVENT DATE: 20170222
